FAERS Safety Report 13550322 (Version 1)
Quarter: 2017Q2

REPORT INFORMATION
  Report Type: Spontaneous
  Country: US (occurrence: US)
  Receive Date: 20170515
  Receipt Date: 20170515
  Transmission Date: 20170830
  Serious: No
  Sender: FDA-Public Use
  Company Number: None

PATIENT
  Age: 24 Year
  Sex: Male

DRUGS (1)
  1. ZOLINZA [Suspect]
     Active Substance: VORINOSTAT
     Dosage: 100 MG 4 CAPS QD PO
     Route: 048

REACTIONS (2)
  - Drug dose omission [None]
  - Pyrexia [None]

NARRATIVE: CASE EVENT DATE: 20170501
